FAERS Safety Report 5881662-9 (Version None)
Quarter: 2008Q3

REPORT INFORMATION
  Report Type: 
  Country: None (occurrence: None)
  Receive Date: 20080912
  Receipt Date: 20080805
  Transmission Date: 20090109
  Serious: No
  Sender: FDA-Public Use
  Company Number: US-ABBOTT-08P-163-0461606-00

PATIENT
  Sex: Male
  Weight: 89.892 kg

DRUGS (7)
  1. HUMIRA [Suspect]
     Indication: RHEUMATOID ARTHRITIS
     Route: 058
     Dates: start: 20080601
  2. ONE-A-DAY [Concomitant]
     Indication: VITAMIN SUPPLEMENTATION
     Route: 048
  3. PREDNISONE TAB [Concomitant]
     Indication: INFLAMMATION
     Route: 048
  4. HYDROCHLOROTHIAZIDE [Concomitant]
     Indication: BLOOD PRESSURE
     Route: 048
  5. DOXAZOSIN MESYLATE [Concomitant]
     Indication: BLOOD PRESSURE
     Route: 048
  6. GUAIFENESIN [Concomitant]
     Indication: RESPIRATORY TRACT CONGESTION
     Route: 048
  7. CYAMOPSIS TETRAGONOLOBA GUM [Concomitant]
     Indication: BOWEL MOVEMENT IRREGULARITY
     Route: 048

REACTIONS (4)
  - ASTHENIA [None]
  - BLOOD PRESSURE INCREASED [None]
  - FATIGUE [None]
  - SLUGGISHNESS [None]
